FAERS Safety Report 5339578-2 (Version None)
Quarter: 2007Q2

REPORT INFORMATION
  Report Type: 
  Country: None (occurrence: None)
  Receive Date: 20070525
  Receipt Date: 20070518
  Transmission Date: 20071010
  Serious: Yes (Hospitalization, Other)
  Sender: FDA-Public Use
  Company Number: 2007SP008163

PATIENT
  Age: 46 Year
  Sex: Female
  Weight: 125.6464 kg

DRUGS (2)
  1. PEG-INTRON [Suspect]
     Indication: HEPATITIS C
     Dosage: 150 MCG; QW; SC
     Route: 058
     Dates: start: 20070209
  2. RIBAVIRIN [Suspect]
     Indication: HEPATITIS C
     Dosage: 600 MG; BID; PO
     Route: 048
     Dates: start: 20070209

REACTIONS (9)
  - CHEST PAIN [None]
  - CHOLELITHIASIS [None]
  - DEPRESSION [None]
  - HYPERTENSION [None]
  - MALAISE [None]
  - NAUSEA [None]
  - RASH [None]
  - RED BLOOD CELL COUNT DECREASED [None]
  - WHITE BLOOD CELL COUNT DECREASED [None]
